FAERS Safety Report 24988673 (Version 1)
Quarter: 2025Q1

REPORT INFORMATION
  Report Type: Spontaneous
  Country: GB (occurrence: GB)
  Receive Date: 20250220
  Receipt Date: 20250220
  Transmission Date: 20250408
  Serious: Yes (Hospitalization, Other)
  Sender: HETERO
  Company Number: GB-AMAROX PHARMA-AMR2025GB00757

PATIENT
  Sex: Male

DRUGS (1)
  1. FINGOLIMOD [Suspect]
     Active Substance: FINGOLIMOD
     Indication: Multiple sclerosis relapse
     Route: 065

REACTIONS (2)
  - Osseous cryptococcosis [Recovering/Resolving]
  - Choroiditis [Recovering/Resolving]
